FAERS Safety Report 5213500-1 (Version None)
Quarter: 2007Q1

REPORT INFORMATION
  Report Type: 
  Country: None (occurrence: None)
  Receive Date: 20070119
  Receipt Date: 20070110
  Transmission Date: 20070707
  Serious: Yes (Hospitalization)
  Sender: FDA-Public Use
  Company Number: FR-ABBOTT-06P-056-0346757-00

PATIENT
  Age: 79 Year
  Sex: Female
  Weight: 51 kg

DRUGS (24)
  1. ZECLAR [Suspect]
     Indication: HELICOBACTER INFECTION
     Route: 048
     Dates: start: 20060810, end: 20060816
  2. DIGOXIN [Interacting]
     Indication: DRUG USE FOR UNKNOWN INDICATION
     Route: 048
     Dates: start: 20060809, end: 20060816
  3. DIGOXIN [Interacting]
     Dates: end: 20060801
  4. FOSINOPRIL SODIUM [Suspect]
     Indication: DRUG USE FOR UNKNOWN INDICATION
     Route: 048
     Dates: end: 20060801
  5. FOSINOPRIL SODIUM [Suspect]
     Route: 048
     Dates: start: 20060813, end: 20060816
  6. AMOXICILLIN [Suspect]
     Indication: HELICOBACTER INFECTION
     Route: 048
     Dates: start: 20060810, end: 20060816
  7. FUROSEMIDE [Suspect]
     Indication: DRUG USE FOR UNKNOWN INDICATION
     Route: 042
  8. GLYCERYL TRINITRATE [Concomitant]
     Indication: DRUG USE FOR UNKNOWN INDICATION
     Dates: end: 20060801
  9. GLYCERYL TRINITRATE [Concomitant]
     Dates: start: 20060808
  10. PRAVASTSTINE [Concomitant]
     Indication: DRUG USE FOR UNKNOWN INDICATION
  11. NICORANDIL [Concomitant]
     Indication: DRUG USE FOR UNKNOWN INDICATION
     Dates: end: 20060801
  12. NICORANDIL [Concomitant]
     Dates: start: 20060812
  13. HUMAN INSULIN [Concomitant]
     Indication: DRUG USE FOR UNKNOWN INDICATION
  14. AMLODIPINE [Concomitant]
     Indication: DRUG USE FOR UNKNOWN INDICATION
     Dates: end: 20060801
  15. AMLODIPINE [Concomitant]
     Dates: start: 20060808
  16. ASPIRIN [Concomitant]
     Indication: DRUG USE FOR UNKNOWN INDICATION
  17. FLUINDIONE [Concomitant]
     Indication: DRUG USE FOR UNKNOWN INDICATION
  18. PHLOROGLUCINOL, TRIMETHYLPHLOROGLUCINOL [Concomitant]
     Indication: DRUG USE FOR UNKNOWN INDICATION
     Dates: start: 20060724, end: 20060727
  19. PARACETAMOL [Concomitant]
     Indication: DRUG USE FOR UNKNOWN INDICATION
     Dates: start: 20060726, end: 20060728
  20. CEFTRIAXONE [Concomitant]
     Indication: DRUG USE FOR UNKNOWN INDICATION
     Dates: start: 20060726, end: 20060728
  21. CEFTRIAXONE [Concomitant]
     Dates: start: 20060728, end: 20060803
  22. OMEPRAZOLE [Concomitant]
     Indication: ULCER
     Route: 042
     Dates: start: 20060807
  23. ISOSORBIDE DINITRATE [Concomitant]
     Indication: DRUG USE FOR UNKNOWN INDICATION
     Dates: start: 20060810
  24. HEPARIN CALCIC [Concomitant]
     Indication: DRUG USE FOR UNKNOWN INDICATION
     Dates: start: 20060801

REACTIONS (10)
  - BRADYCARDIA [None]
  - CARDIAC FAILURE [None]
  - CONFUSIONAL STATE [None]
  - HYPERKALAEMIA [None]
  - OLIGURIA [None]
  - OVERDOSE [None]
  - RENAL FAILURE ACUTE [None]
  - RENAL IMPAIRMENT [None]
  - RESPIRATORY DISORDER [None]
  - VENTRICULAR EXTRASYSTOLES [None]
